FAERS Safety Report 19431066 (Version 1)
Quarter: 2021Q2

REPORT INFORMATION
  Report Type: Other
  Country: GB (occurrence: GB)
  Receive Date: 20210617
  Receipt Date: 20210617
  Transmission Date: 20210717
  Serious: No
  Sender: FDA-Public Use
  Company Number: GB-LUPIN PHARMACEUTICALS INC.-2021-09363

PATIENT
  Sex: Female

DRUGS (1)
  1. SERTRALINE [Suspect]
     Active Substance: SERTRALINE HYDROCHLORIDE
     Indication: PANIC ATTACK
     Dosage: UNK
     Route: 048
     Dates: start: 202007

REACTIONS (7)
  - Foaming at mouth [Unknown]
  - Ear pain [Unknown]
  - Oropharyngeal pain [Unknown]
  - Product substitution issue [Unknown]
  - Hypoaesthesia oral [Unknown]
  - Paraesthesia oral [Unknown]
  - Drug ineffective [Unknown]
